FAERS Safety Report 14689994 (Version 1)
Quarter: 2018Q1

REPORT INFORMATION
  Report Type: Spontaneous
  Country: FR (occurrence: FR)
  Receive Date: 20180328
  Receipt Date: 20180328
  Transmission Date: 20180509
  Serious: Yes (Other)
  Sender: FDA-Public Use
  Company Number: US-OTSUKA-US-2012-10293

PATIENT
  Age: 59 Year
  Sex: Female

DRUGS (5)
  1. BUSULFEX [Interacting]
     Active Substance: BUSULFAN
     Dosage: 48 MG, TEST DOSE
     Route: 065
  2. FLUDARABIN [Concomitant]
     Active Substance: FLUDARABINE PHOSPHATE
     Indication: PRODUCT USED FOR UNKNOWN INDICATION
     Dosage: UNK
     Route: 065
  3. BUSULFEX [Suspect]
     Active Substance: BUSULFAN
     Indication: STEM CELL TRANSPLANT
     Dosage: 0.8 MG/KG, UNK
     Route: 042
  4. BUSULFEX [Interacting]
     Active Substance: BUSULFAN
     Dosage: 124 MG, UNK
     Route: 065
  5. DEFERASIROX [Interacting]
     Active Substance: DEFERASIROX
     Indication: IRON OVERLOAD
     Dosage: UNK
     Route: 048

REACTIONS (3)
  - Drug interaction [Unknown]
  - Drug clearance decreased [Unknown]
  - Drug clearance increased [Unknown]
